FAERS Safety Report 4872689-4 (Version None)
Quarter: 2005Q4

REPORT INFORMATION
  Report Type: 
  Country: None (occurrence: None)
  Receive Date: 20051229
  Receipt Date: 20051212
  Transmission Date: 20060501
  Serious: Yes (Hospitalization)
  Sender: FDA-Public Use
  Company Number: 2005BH002322

PATIENT
  Age: 1 Year
  Sex: Male
  Weight: 12.7 kg

DRUGS (2)
  1. ADVATE [Suspect]
     Indication: FACTOR VIII DEFICIENCY
     Dosage: 1152 IU; IV
     Route: 042
  2. FERROUS SULFATE TAB [Concomitant]

REACTIONS (10)
  - BACTERIAL INFECTION [None]
  - CATHETER RELATED INFECTION [None]
  - DEVICE RELATED INFECTION [None]
  - FALL [None]
  - HAEMOGLOBIN DECREASED [None]
  - HEAD INJURY [None]
  - PLATELET COUNT INCREASED [None]
  - STAPHYLOCOCCAL INFECTION [None]
  - VOMITING [None]
  - WHITE BLOOD CELL COUNT DECREASED [None]
